FAERS Safety Report 5197301-9 (Version None)
Quarter: 2007Q1

REPORT INFORMATION
  Report Type: 
  Country: None (occurrence: None)
  Receive Date: 20070103
  Receipt Date: 20061222
  Transmission Date: 20070707
  Serious: Yes (Hospitalization)
  Sender: FDA-Public Use
  Company Number: JP-AMGEN-US204643

PATIENT
  Sex: Male

DRUGS (11)
  1. DARBEPOETIN ALFA [Suspect]
     Indication: ANAEMIA OF MALIGNANT DISEASE
     Route: 058
     Dates: start: 20060728, end: 20060927
  2. CISPLATIN [Suspect]
     Route: 042
  3. VINORELBINE TARTRATE [Suspect]
     Route: 042
  4. FERROUS FUMARATE [Concomitant]
  5. MANIDIPINE HYDROCHLORIDE [Concomitant]
  6. BENZBROMARONE [Concomitant]
  7. CARBOCISTEINE [Concomitant]
  8. SULPIRIDE [Concomitant]
  9. BROMHEXINE HYDROCHLORIDE [Concomitant]
  10. MAGNESIUM OXIDE [Concomitant]
  11. DOMPERIDONE [Concomitant]

REACTIONS (1)
  - SUPRAVENTRICULAR TACHYCARDIA [None]
